FAERS Safety Report 18463220 (Version 1)
Quarter: 2020Q4

REPORT INFORMATION
  Report Type: Spontaneous
  Country: US (occurrence: US)
  Receive Date: 20201104
  Receipt Date: 20201104
  Transmission Date: 20210114
  Serious: Yes (Hospitalization)
  Sender: FDA-Public Use
  Company Number: None

PATIENT
  Age: 11 Year
  Sex: Female

DRUGS (7)
  1. GUANFACINE. [Concomitant]
     Active Substance: GUANFACINE
  2. CYPROHEPTAD [Concomitant]
  3. SILDENAFIL. [Concomitant]
     Active Substance: SILDENAFIL
  4. VITAMIN C [Concomitant]
     Active Substance: ASCORBIC ACID
  5. FUROSEMIDE. [Concomitant]
     Active Substance: FUROSEMIDE
  6. SPIRONOLACTONE. [Concomitant]
     Active Substance: SPIRONOLACTONE
  7. TADALAFIL. [Suspect]
     Active Substance: TADALAFIL
     Indication: PORTAL HYPERTENSION
     Route: 048

REACTIONS (1)
  - Infection [None]
